FAERS Safety Report 21856072 (Version 1)
Quarter: 2023Q1

REPORT INFORMATION
  Report Type: Spontaneous
  Country: US (occurrence: US)
  Receive Date: 20230112
  Receipt Date: 20230112
  Transmission Date: 20230418
  Serious: Yes (Other)
  Sender: FDA-Public Use
  Company Number: US-ALLERGAN-2300531US

PATIENT
  Sex: Male

DRUGS (3)
  1. FML [Suspect]
     Active Substance: FLUOROMETHOLONE
     Indication: Product used for unknown indication
     Dosage: 7 IN MORNING AND 7 IN THE EVENING
  2. FML [Suspect]
     Active Substance: FLUOROMETHOLONE
     Dosage: 1 IN MORNING AND 1 IN EVENING
  3. UNSPECIFIED INGREDIENT [Concomitant]
     Active Substance: UNSPECIFIED INGREDIENT
     Indication: Blood pressure abnormal

REACTIONS (13)
  - Neoplasm malignant [Unknown]
  - Dizziness [Unknown]
  - Blood pressure abnormal [Unknown]
  - Hypoaesthesia [Unknown]
  - Dry eye [Unknown]
  - Dry mouth [Unknown]
  - Eye disorder [Unknown]
  - Inadequate aseptic technique in use of product [Unknown]
  - Incorrect dose administered [Unknown]
  - Product use complaint [Unknown]
  - Eye irritation [Unknown]
  - Vision blurred [Unknown]
  - Product quality issue [Unknown]
